FAERS Safety Report 7059462-6 (Version None)
Quarter: 2010Q4

REPORT INFORMATION
  Report Type: 
  Country: None (occurrence: None)
  Receive Date: 20101025
  Receipt Date: 20101015
  Transmission Date: 20110411
  Serious: Yes (Hospitalization, Other)
  Sender: FDA-Public Use
  Company Number: US-JNJFOC-20101004915

PATIENT
  Sex: Female
  Weight: 67.59 kg

DRUGS (12)
  1. FENTANYL [Suspect]
     Indication: PAIN
     Route: 062
  2. FENTANYL [Suspect]
     Dosage: 3 PATCHES OF 100 UG/HR PATCH
     Route: 062
  3. FENTANYL CITRATE [Suspect]
     Indication: PAIN
     Route: 062
  4. ROXICET [Suspect]
     Indication: PAIN
     Route: 048
  5. NORCO [Suspect]
     Indication: PAIN
     Route: 048
  6. ALCOHOL [Interacting]
     Indication: PRODUCT USED FOR UNKNOWN INDICATION
     Route: 065
  7. ZOLPIDEM [Concomitant]
     Route: 048
  8. OXYCONTIN [Concomitant]
     Indication: BREAKTHROUGH PAIN
     Route: 048
  9. FIORINAL W/CODEINE [Concomitant]
     Dosage: 30 MG TABLET/ 2 TABLETS EVERY 4 HOURS
     Route: 048
  10. DIAZEPAM [Concomitant]
     Route: 048
  11. AMBIEN [Concomitant]
     Dosage: 12.5 MG/1 PER EVENING
     Route: 048
  12. SOMA [Concomitant]
     Route: 048

REACTIONS (14)
  - ACCIDENTAL OVERDOSE [None]
  - DIZZINESS [None]
  - DRUG INEFFECTIVE [None]
  - DRUG INTERACTION [None]
  - DRUG WITHDRAWAL SYNDROME [None]
  - FEELING HOT [None]
  - HALLUCINATION [None]
  - HYPERHIDROSIS [None]
  - HYSTERECTOMY [None]
  - INSOMNIA [None]
  - MIGRAINE [None]
  - NAUSEA [None]
  - PAIN IN EXTREMITY [None]
  - PARANOIA [None]
